FAERS Safety Report 8386088-4 (Version None)
Quarter: 2012Q2

REPORT INFORMATION
  Report Type: 
  Country: None (occurrence: None)
  Receive Date: 20120525
  Receipt Date: 20120515
  Transmission Date: 20120825
  Serious: Yes (Hospitalization, Disabling)
  Sender: FDA-Public Use
  Company Number: CA-JNJFOC-20110708608

PATIENT
  Sex: Male
  Weight: 75 kg

DRUGS (7)
  1. FLAGYL [Concomitant]
  2. REMICADE [Suspect]
     Indication: CROHN'S DISEASE
     Route: 042
     Dates: start: 20080923
  3. CIPROFLOXACIN HCL [Concomitant]
  4. TYLENOL W/ CODEINE NO. 3 [Concomitant]
  5. PENTASA [Concomitant]
  6. MESALAMINE [Concomitant]
  7. ADVIL [Concomitant]

REACTIONS (5)
  - PARAESTHESIA [None]
  - CONCUSSION [None]
  - STRESS [None]
  - ROAD TRAFFIC ACCIDENT [None]
  - CROHN'S DISEASE [None]
